FAERS Safety Report 13307658 (Version 5)
Quarter: 2017Q2

REPORT INFORMATION
  Report Type: Spontaneous
  Country: GB (occurrence: GB)
  Receive Date: 20170308
  Receipt Date: 20170404
  Transmission Date: 20170830
  Serious: Yes (Other)
  Sender: FDA-Public Use
  Company Number: GB-TEVA-744439ACC

PATIENT
  Age: 87 Year
  Sex: Female
  Weight: 46 kg

DRUGS (5)
  1. GTN [Concomitant]
     Active Substance: NITROGLYCERIN
     Indication: HEART DISEASE CONGENITAL
     Route: 061
  2. THYROXINE [Concomitant]
     Active Substance: LEVOTHYROXINE
     Indication: HYPOTHYROIDISM
  3. MORPHINE [Suspect]
     Active Substance: MORPHINE
     Indication: PAIN
     Route: 065
  4. PROLIA [Interacting]
     Active Substance: DENOSUMAB
     Indication: OSTEOPOROSIS
     Route: 058
     Dates: start: 20170124
  5. ASPIRIN. [Concomitant]
     Active Substance: ASPIRIN

REACTIONS (26)
  - Deafness [Recovering/Resolving]
  - Decreased appetite [Unknown]
  - Hypoacusis [Not Recovered/Not Resolved]
  - Influenza like illness [Not Recovered/Not Resolved]
  - Gait disturbance [Unknown]
  - Ear infection [Unknown]
  - Cellulitis [Recovered/Resolved]
  - Hip fracture [Recovered/Resolved]
  - Skin discolouration [Unknown]
  - Bone pain [Not Recovered/Not Resolved]
  - Oropharyngeal pain [Not Recovered/Not Resolved]
  - Erythema [Unknown]
  - Hypertension [Recovered/Resolved]
  - Procedural pain [Unknown]
  - Drug ineffective [Unknown]
  - Weight decreased [Unknown]
  - Stress [Unknown]
  - Incontinence [Unknown]
  - Cardiac disorder [Unknown]
  - Bone disorder [Not Recovered/Not Resolved]
  - Malaise [Unknown]
  - Feeling cold [Unknown]
  - Drug-disease interaction [Unknown]
  - Constipation [Not Recovered/Not Resolved]
  - Urinary tract infection [Recovered/Resolved]
  - Abdominal pain [Recovered/Resolved]

NARRATIVE: CASE EVENT DATE: 201701
